FAERS Safety Report 6283794-2 (Version None)
Quarter: 2009Q3

REPORT INFORMATION
  Report Type: 
  Country: None (occurrence: None)
  Receive Date: 20090724
  Receipt Date: 20090717
  Transmission Date: 20100115
  Serious: Yes (Hospitalization)
  Sender: FDA-Public Use
  Company Number: CA-ASTRAZENECA-2009UW20301

PATIENT
  Sex: Male

DRUGS (2)
  1. ZOLADEX [Suspect]
     Route: 058
     Dates: start: 20040101
  2. ANDROCUR [Concomitant]

REACTIONS (6)
  - APATHY [None]
  - ASTHENIA [None]
  - DEPRESSION [None]
  - GYNAECOMASTIA [None]
  - OVERDOSE [None]
  - SUICIDAL IDEATION [None]
